FAERS Safety Report 19366619 (Version 3)
Quarter: 2021Q2

REPORT INFORMATION
  Report Type: Spontaneous
  Country: US (occurrence: US)
  Receive Date: 20210603
  Receipt Date: 20210626
  Transmission Date: 20210717
  Serious: Yes (Life-Threatening, Hospitalization, Other)
  Sender: FDA-Public Use
  Company Number: US-ACCORD-227089

PATIENT
  Age: 73 Year
  Sex: Female

DRUGS (5)
  1. METHOTREXATE. [Interacting]
     Active Substance: METHOTREXATE
     Indication: SJOGREN^S SYNDROME
  2. SULFASALAZINE. [Interacting]
     Active Substance: SULFASALAZINE
     Indication: SJOGREN^S SYNDROME
  3. ZOLEDRONIC ACID [Interacting]
     Active Substance: ZOLEDRONIC ACID
     Indication: OSTEOPOROSIS
     Dates: start: 20201123, end: 20201123
  4. ADALIMUMAB [Interacting]
     Active Substance: ADALIMUMAB
     Indication: SJOGREN^S SYNDROME
  5. METHOTREXATE. [Suspect]
     Active Substance: METHOTREXATE
     Indication: RHEUMATOID ARTHRITIS

REACTIONS (10)
  - Leukocytosis [Recovered/Resolved]
  - Blood pressure decreased [Recovered/Resolved]
  - Renal tubular necrosis [Recovered/Resolved]
  - Drug interaction [Unknown]
  - Nephropathy toxic [Recovered/Resolved]
  - Acute kidney injury [Recovered/Resolved]
  - Metabolic acidosis [Recovered/Resolved]
  - Anaemia [Recovered/Resolved]
  - Hypocalcaemia [Recovered/Resolved]
  - Hyponatraemia [Recovered/Resolved]

NARRATIVE: CASE EVENT DATE: 2020
